FAERS Safety Report 19466015 (Version 1)
Quarter: 2021Q2

REPORT INFORMATION
  Report Type: Report from Study
  Country: None (occurrence: MX)
  Receive Date: 20210624
  Receipt Date: 20210624
  Transmission Date: 20210717
  Serious: Yes (Other)
  Sender: FDA-Public Use
  Company Number: MX-ABBVIE-21P-107-3961483-00

PATIENT
  Age: 20 Year
  Sex: Female
  Weight: 68 kg

DRUGS (2)
  1. LUVOX [Suspect]
     Active Substance: FLUVOXAMINE MALEATE
     Dosage: DAILY DOSE 300 MILLIGRAM, 1?0?2, ONE TABLET IN THE MORNING AND TWO IN THE EVENING.
     Route: 048
     Dates: start: 20210531
  2. LUVOX [Suspect]
     Active Substance: FLUVOXAMINE MALEATE
     Indication: BIPOLAR DISORDER
     Dosage: DAILY DOSE 200 MILLIGRAM, 0?0?2 AT NIGHT
     Route: 048
     Dates: start: 20210505, end: 20210531

REACTIONS (4)
  - Suicide attempt [Recovered/Resolved]
  - Speech disorder [Not Recovered/Not Resolved]
  - Product use in unapproved indication [Unknown]
  - Somnolence [Not Recovered/Not Resolved]

NARRATIVE: CASE EVENT DATE: 20210505
